FAERS Safety Report 9714899 (Version 2)
Quarter: 2013Q4

REPORT INFORMATION
  Report Type: Spontaneous
  Country: CA (occurrence: CA)
  Receive Date: 20131126
  Receipt Date: 20131210
  Transmission Date: 20140711
  Serious: Yes (Other)
  Sender: FDA-Public Use
  Company Number: CA-ABBVIE-13P-028-1172769-00

PATIENT
  Age: 14 Year
  Sex: Male

DRUGS (3)
  1. HUMIRA [Suspect]
     Indication: JUVENILE IDIOPATHIC ARTHRITIS
     Dosage: UNKNOWN
     Route: 058
     Dates: start: 20131026, end: 20131109
  2. HUMIRA [Suspect]
  3. INFLUENZA VACCINES [Concomitant]
     Indication: IMMUNISATION
     Dates: start: 20131108, end: 20131109

REACTIONS (2)
  - Angioedema [Recovered/Resolved]
  - Urticaria [Unknown]
